FAERS Safety Report 9789761 (Version 1)
Quarter: 2013Q4

REPORT INFORMATION
  Report Type: Spontaneous
  Country: US (occurrence: US)
  Receive Date: 20131231
  Receipt Date: 20131231
  Transmission Date: 20140711
  Serious: No
  Sender: FDA-Public Use
  Company Number: US-PFIZER INC-2013372408

PATIENT
  Age: 49 Year
  Sex: Male
  Weight: 54.42 kg

DRUGS (1)
  1. ADVIL [Suspect]
     Indication: MIGRAINE
     Dosage: 200 MG, UNK
     Route: 048
     Dates: start: 201312, end: 20131216

REACTIONS (2)
  - Drug screen positive [Unknown]
  - Feeling abnormal [Unknown]
